FAERS Safety Report 4690416-0 (Version None)
Quarter: 2005Q2

REPORT INFORMATION
  Report Type: 
  Country: None (occurrence: None)
  Receive Date: 20050615
  Receipt Date: 20050607
  Transmission Date: 20051028
  Serious: Yes (Other)
  Sender: FDA-Public Use
  Company Number: 2005PK01009

PATIENT
  Age: 47 Year
  Sex: Female

DRUGS (15)
  1. SEROQUEL [Suspect]
     Route: 048
     Dates: start: 20040301
  2. ZOLOFT [Suspect]
     Route: 048
     Dates: start: 20050223, end: 20050302
  3. ZOLOFT [Suspect]
     Route: 048
     Dates: start: 20050303, end: 20050311
  4. ZOLOFT [Suspect]
     Route: 048
     Dates: start: 20050312, end: 20050406
  5. TEMESTA [Concomitant]
     Route: 048
     Dates: start: 20050310, end: 20050310
  6. TEMESTA [Concomitant]
     Route: 048
     Dates: start: 20050311, end: 20050314
  7. TEMESTA [Concomitant]
     Route: 048
     Dates: start: 20050315, end: 20050316
  8. TEMESTA [Concomitant]
     Route: 048
     Dates: start: 20050317, end: 20050317
  9. TEMESTA [Concomitant]
     Route: 048
     Dates: start: 20050318, end: 20050322
  10. TEMESTA [Concomitant]
     Route: 048
     Dates: start: 20050407, end: 20050407
  11. TEMESTA [Concomitant]
     Route: 048
     Dates: start: 20050408, end: 20050411
  12. TEMESTA [Concomitant]
     Route: 048
     Dates: start: 20050412, end: 20050413
  13. TEMESTA [Concomitant]
     Route: 048
     Dates: start: 20050414, end: 20050417
  14. TENORETIC 100 [Concomitant]
     Dates: start: 20050309
  15. ELTROXIN [Concomitant]
     Route: 048
     Dates: start: 20040401

REACTIONS (8)
  - AGGRESSION [None]
  - ANXIETY [None]
  - BLOOD PRESSURE FLUCTUATION [None]
  - DELUSION [None]
  - EXCITABILITY [None]
  - LOSS OF CONSCIOUSNESS [None]
  - PSYCHOTIC DISORDER [None]
  - SEROTONIN SYNDROME [None]
